FAERS Safety Report 13195192 (Version 1)
Quarter: 2017Q1

REPORT INFORMATION
  Report Type: Spontaneous
  Country: FR (occurrence: FR)
  Receive Date: 20170208
  Receipt Date: 20170208
  Transmission Date: 20170428
  Serious: Yes (Other)
  Sender: FDA-Public Use
  Company Number: FR-BAXTER-2017BAX004217

PATIENT
  Age: 60 Year
  Sex: Female

DRUGS (24)
  1. ENDOXAN 1000 MG, POUDRE POUR SOLUTION INJECTABLE [Suspect]
     Active Substance: CYCLOPHOSPHAMIDE
     Indication: INVASIVE DUCTAL BREAST CARCINOMA
     Dosage: INDUCTION CHEMOTHERAPY COURSES WITH 3 CYCLES OF FEC 100
     Route: 065
     Dates: start: 200502, end: 200506
  2. TAMOXIFEN [Suspect]
     Active Substance: TAMOXIFEN
     Indication: INVASIVE DUCTAL BREAST CARCINOMA
     Route: 065
     Dates: start: 200510, end: 200807
  3. AVASTIN [Suspect]
     Active Substance: BEVACIZUMAB
     Dosage: LAST DOSE
     Route: 065
     Dates: end: 20140131
  4. XELODA [Suspect]
     Active Substance: CAPECITABINE
     Indication: BREAST CANCER
     Route: 065
     Dates: start: 201204
  5. AVASTIN [Suspect]
     Active Substance: BEVACIZUMAB
     Indication: BREAST CANCER
     Dosage: FIRST LINE OF CHEMOTHERAPY, CONTINUED
     Route: 065
     Dates: start: 201204
  6. AVASTIN [Suspect]
     Active Substance: BEVACIZUMAB
     Indication: RECURRENT CANCER
     Dosage: AS SINGLE THERAPY
     Route: 065
     Dates: start: 201212
  7. MYOCET [Suspect]
     Active Substance: DOXORUBICIN
     Indication: BREAST CANCER METASTATIC
     Dosage: THIRD LINE OF CHENMOTHERAPY
     Route: 042
     Dates: start: 20160322, end: 20161216
  8. ENDOXAN 1000 MG, POUDRE POUR SOLUTION INJECTABLE [Suspect]
     Active Substance: CYCLOPHOSPHAMIDE
     Indication: BREAST CANCER METASTATIC
     Dosage: THIRD-LINE CHEMOTHERAPY
     Route: 042
     Dates: start: 20160322, end: 20161216
  9. AROMASINE [Suspect]
     Active Substance: EXEMESTANE
     Indication: INVASIVE DUCTAL BREAST CARCINOMA
     Route: 065
     Dates: start: 200807
  10. XELODA [Suspect]
     Active Substance: CAPECITABINE
     Indication: RECURRENT CANCER
     Route: 065
     Dates: end: 201212
  11. XELODA [Suspect]
     Active Substance: CAPECITABINE
     Dosage: CONTINUED XELODA
     Route: 065
     Dates: start: 201403
  12. XGEVA [Suspect]
     Active Substance: DENOSUMAB
     Indication: RECURRENT CANCER
     Route: 065
     Dates: start: 201312
  13. AVASTIN [Suspect]
     Active Substance: BEVACIZUMAB
     Dosage: AVASTIN CONTINUED
     Route: 065
     Dates: start: 201306
  14. HALAVEN [Suspect]
     Active Substance: ERIBULIN MESYLATE
     Indication: RECURRENT CANCER
     Dosage: SECOND LINE CHEMOTHERAPY, 3 CYCLES
     Route: 065
     Dates: end: 201503
  15. TAXOTERE [Suspect]
     Active Substance: DOCETAXEL
     Indication: INVASIVE DUCTAL BREAST CARCINOMA
     Dosage: 3 CYCLES
     Route: 065
  16. XELODA [Suspect]
     Active Substance: CAPECITABINE
     Dosage: CONTINUED XELODA
     Route: 065
     Dates: start: 201501
  17. 5-FU [Suspect]
     Active Substance: FLUOROURACIL
     Indication: INVASIVE DUCTAL BREAST CARCINOMA
     Dosage: INDUCTION CHEMOTHERAPY COURSES WITH 3 CYCLES OF FEC 100
     Route: 065
     Dates: start: 200502, end: 200506
  18. EPIRUBICIN [Suspect]
     Active Substance: EPIRUBICIN
     Indication: INVASIVE DUCTAL BREAST CARCINOMA
     Dosage: INDUCTION CHEMOTHERAPY COURSES WITH 3 CYCLES OF FEC 100
     Route: 065
     Dates: start: 200502, end: 200506
  19. AROMASINE [Suspect]
     Active Substance: EXEMESTANE
     Indication: RECURRENT CANCER
     Dosage: AROMASINE RESUMED
     Route: 065
     Dates: start: 201203, end: 201204
  20. TAXOL [Suspect]
     Active Substance: PACLITAXEL
     Indication: BREAST CANCER
     Dosage: FIRST-LINE CHEMOTHERAPY
     Route: 065
     Dates: start: 201204, end: 201204
  21. HALAVEN [Suspect]
     Active Substance: ERIBULIN MESYLATE
     Indication: METASTASES TO BONE
  22. AROMASINE [Suspect]
     Active Substance: EXEMESTANE
     Indication: METASTASES TO BONE
  23. XELODA [Suspect]
     Active Substance: CAPECITABINE
     Route: 065
     Dates: start: 201306
  24. CLASTOBAN [Suspect]
     Active Substance: CLODRONIC ACID
     Indication: BREAST CANCER
     Route: 065
     Dates: start: 201205, end: 201312

REACTIONS (19)
  - Recurrent cancer [Unknown]
  - Recurrent cancer [Unknown]
  - Recurrent cancer [Unknown]
  - Neutropenia [Unknown]
  - Nephropathy toxic [Unknown]
  - Recurrent cancer [Unknown]
  - Metastases to skin [Unknown]
  - Metastases to pancreas [Unknown]
  - Metastases to bone [Unknown]
  - Therapy partial responder [Unknown]
  - Hypersensitivity [Unknown]
  - Pachymeningitis [Unknown]
  - Therapy partial responder [Unknown]
  - Vertebral lesion [Unknown]
  - Metastases to eye [Unknown]
  - Metastases to peritoneum [Unknown]
  - Metastases to bone [Unknown]
  - Anaemia [Not Recovered/Not Resolved]
  - Breast cancer [Unknown]

NARRATIVE: CASE EVENT DATE: 201203
